FAERS Safety Report 8735775 (Version 2)
Quarter: 2012Q4

REPORT INFORMATION
  Report Type: Report from Study
  Country: CA (occurrence: CA)
  Receive Date: 20120822
  Receipt Date: 20120928
  Transmission Date: 20130627
  Serious: Yes (Hospitalization, Other)
  Sender: FDA-Public Use
  Company Number: CA-JNJFOC-20120806547

PATIENT
  Age: 30 Year
  Sex: Male
  Weight: 74.8 kg

DRUGS (4)
  1. REMICADE [Suspect]
     Indication: CROHN^S DISEASE
     Route: 042
     Dates: start: 20120813
  2. REMICADE [Suspect]
     Indication: CROHN^S DISEASE
     Route: 042
     Dates: start: 20120501
  3. TYLENOL 3 [Concomitant]
     Route: 065
  4. OXYCONTIN [Concomitant]
     Route: 065

REACTIONS (4)
  - Hernia [Recovering/Resolving]
  - Haematochezia [Not Recovered/Not Resolved]
  - Abdominal pain [Not Recovered/Not Resolved]
  - Mucous stools [Not Recovered/Not Resolved]
